FAERS Safety Report 6145320-8 (Version None)
Quarter: 2009Q2

REPORT INFORMATION
  Report Type: 
  Country: None (occurrence: None)
  Receive Date: 20090406
  Receipt Date: 20090326
  Transmission Date: 20091009
  Serious: Yes (Other)
  Sender: FDA-Public Use
  Company Number: TW-JNJCH-2009005167

PATIENT
  Age: 31 Year
  Sex: Female

DRUGS (1)
  1. REGAINE 2% [Suspect]
     Indication: ALOPECIA
     Dosage: TEXT:UNSPECIFIED, TWICE DAILY
     Route: 061

REACTIONS (2)
  - APPLICATION SITE DERMATITIS [None]
  - BREAST CYST [None]
